FAERS Safety Report 4323387-7 (Version None)
Quarter: 2004Q1

REPORT INFORMATION
  Report Type: 
  Country: None (occurrence: None)
  Receive Date: 20040325
  Receipt Date: 20040323
  Transmission Date: 20041129
  Serious: Yes (Hospitalization)
  Sender: FDA-Public Use
  Company Number: US-GLAXOSMITHKLINE-A0504061A

PATIENT
  Sex: Male

DRUGS (4)
  1. WELLBUTRIN [Suspect]
     Indication: EX-SMOKER
     Dosage: 150MG SEE DOSAGE TEXT
     Route: 048
     Dates: start: 20040224
  2. NICORETTE [Concomitant]
  3. DIOVAN [Concomitant]
  4. STELAZINE [Concomitant]

REACTIONS (4)
  - CONVULSION [None]
  - JOINT DISLOCATION [None]
  - MEDICATION ERROR [None]
  - UPPER LIMB FRACTURE [None]
